FAERS Safety Report 16575139 (Version 1)
Quarter: 2019Q3

REPORT INFORMATION
  Report Type: Spontaneous
  Country: DE (occurrence: DE)
  Receive Date: 20190715
  Receipt Date: 20190715
  Transmission Date: 20191004
  Serious: Yes (Hospitalization)
  Sender: FDA-Public Use
  Company Number: PHHY2019DE157934

PATIENT
  Age: 80 Year
  Sex: Male
  Weight: 85 kg

DRUGS (10)
  1. CYCLOPHOSPHAMIDE. [Suspect]
     Active Substance: CYCLOPHOSPHAMIDE
     Indication: PRODUCT USED FOR UNKNOWN INDICATION
     Dosage: NK NK, NACH SCHEMA, ZULETZT AM 11.12.2017, INJEKTIONS-/INFUSIONSL?SUNG
     Route: 042
  2. RITUXIMAB. [Suspect]
     Active Substance: RITUXIMAB
     Indication: PRODUCT USED FOR UNKNOWN INDICATION
     Dosage: NK NK, NACH SCHEMA, ZULETZT AM 11.12.2017, INJEKTIONS-/INFUSIONSL?SUNG
     Route: 042
  3. METOPROLOL. [Concomitant]
     Active Substance: METOPROLOL
     Indication: PRODUCT USED FOR UNKNOWN INDICATION
     Dosage: 47.5 MG, QD TABLETTEN
     Route: 048
  4. RAMIPRIL. [Concomitant]
     Active Substance: RAMIPRIL
     Indication: PRODUCT USED FOR UNKNOWN INDICATION
     Dosage: 5 MG, QD TABLETTEN
     Route: 048
  5. DOXORUBICIN [Suspect]
     Active Substance: DOXORUBICIN
     Indication: PRODUCT USED FOR UNKNOWN INDICATION
     Dosage: NK NK, NACH SCHEMA, ZULETZT AM 11.12.2017, INJEKTIONS-/INFUSIONSL?SUNG
     Route: 042
  6. NEULASTA [Concomitant]
     Active Substance: PEGFILGRASTIM
     Indication: PRODUCT USED FOR UNKNOWN INDICATION
     Dosage: 6 MG, EINMALIG, INJEKTIONS/IN FUSIONSLOSUNG
     Route: 058
  7. VINCRISTIN [Suspect]
     Active Substance: VINCRISTINE
     Indication: PRODUCT USED FOR UNKNOWN INDICATION
     Dosage: NK NK, NACH SCHEMA, ZULETZT AM 11.12.2017, INJEKTIONS-/INFUSIONSL?SUNG
     Route: 042
  8. ENOXAPARIN [Concomitant]
     Active Substance: ENOXAPARIN
     Indication: PRODUCT USED FOR UNKNOWN INDICATION
     Dosage: 0.6 ML, QD INJEKTIONS INFUSIONSLOSUNG
     Route: 058
  9. PREDNISOLON [Suspect]
     Active Substance: PREDNISOLONE
     Indication: PRODUCT USED FOR UNKNOWN INDICATION
     Dosage: NK NK, NACH SCHEMA, ZULETZT AM 11 12 2017, INJEKTIONS/ IN FUSIONSLOSUNG
     Route: 042
  10. PREDNISOLON [Suspect]
     Active Substance: PREDNISOLONE
     Dosage: 100 MG, QD  TABLETTEN
     Route: 048

REACTIONS (6)
  - Fall [Unknown]
  - Syncope [Unknown]
  - Oedema peripheral [Unknown]
  - Cough [Unknown]
  - Dizziness [Unknown]
  - Dyspnoea [Unknown]
